FAERS Safety Report 9664865 (Version 2)
Quarter: 2013Q4

REPORT INFORMATION
  Report Type: Spontaneous
  Country: CA (occurrence: CA)
  Receive Date: 20131101
  Receipt Date: 20131114
  Transmission Date: 20140711
  Serious: Yes (Other)
  Sender: FDA-Public Use
  Company Number: CA-VIIV HEALTHCARE LIMITED-A1047441A

PATIENT
  Sex: Male
  Weight: 83.9 kg

DRUGS (26)
  1. LAMIVUDINE-HIV [Suspect]
     Indication: HIV INFECTION
     Dosage: 150MG AT NIGHT
     Route: 048
     Dates: start: 20070420
  2. GLUCAGON [Concomitant]
     Indication: HYPOGLYCAEMIA
     Dosage: 1ML AS REQUIRED
     Route: 058
  3. NITROGLYCERIN [Concomitant]
     Dosage: .4MG AS REQUIRED
     Route: 060
  4. PANTOPRAZOLE [Concomitant]
     Dosage: 40MG PER DAY
  5. ROFLUMILAST [Concomitant]
     Dosage: 500MCG PER DAY
  6. CITALOPRAM [Concomitant]
     Dosage: 20MG PER DAY
  7. ASAPHEN [Concomitant]
     Dosage: 80MG PER DAY
  8. ISENTRESS [Concomitant]
     Dosage: 400MG TWICE PER DAY
  9. EZETROL [Concomitant]
     Dosage: 10MG PER DAY
  10. ROSUVASTATIN [Concomitant]
     Dosage: 40MG PER DAY
  11. HYDROCHLOROTHIAZIDE [Concomitant]
     Dosage: 25MG PER DAY
  12. CALCIUM [Concomitant]
     Dosage: 500MG THREE TIMES PER DAY
  13. VITAMIN D [Concomitant]
     Dosage: 400IU THREE TIMES PER DAY
  14. METOPROLOL [Concomitant]
     Dosage: 50MG TWICE PER DAY
  15. LOSARTAN [Concomitant]
     Dosage: 50MG PER DAY
  16. TAMSULOSIN [Concomitant]
     Dosage: .4MG PER DAY
  17. FERROUS SULFATE [Concomitant]
     Dosage: 300MG PER DAY
  18. AMLODIPINE [Concomitant]
     Dosage: 10MG PER DAY
  19. ZIAGEN [Concomitant]
     Dosage: 300MG TWICE PER DAY
  20. SPIRIVA [Concomitant]
     Dosage: 1PUFF PER DAY
     Route: 055
  21. NOVORAPID [Concomitant]
  22. LANTUS [Concomitant]
     Dosage: 38UNIT TWICE PER DAY
  23. QVAR [Concomitant]
     Dosage: 400MCG TWICE PER DAY
     Route: 055
  24. OXEZE [Concomitant]
     Dosage: 12MCG TWICE PER DAY
     Route: 055
  25. SALBUTAMOL [Concomitant]
  26. OXAZEPAM [Concomitant]
     Dosage: 15MG PER DAY

REACTIONS (1)
  - Renal impairment [Not Recovered/Not Resolved]
